FAERS Safety Report 20729949 (Version 1)
Quarter: 2022Q2

REPORT INFORMATION
  Report Type: Spontaneous
  Country: CN (occurrence: CN)
  Receive Date: 20220420
  Receipt Date: 20220420
  Transmission Date: 20220720
  Serious: Yes (Hospitalization)
  Sender: FDA-Public Use
  Company Number: CN-GLAXOSMITHKLINE-CN2022APC064929

PATIENT
  Age: 48 Year
  Sex: Male
  Weight: 70 kg

DRUGS (5)
  1. LAMOTRIGINE [Suspect]
     Active Substance: LAMOTRIGINE
     Indication: Emotional disorder
     Dosage: 25 MG, BID
     Route: 048
     Dates: start: 20220314
  2. LAMOTRIGINE [Suspect]
     Active Substance: LAMOTRIGINE
     Dosage: 75 MG, QD, 50 MG EVERY DAY AND 25 MG PER ORAL EVERY NIGHT
     Route: 048
     Dates: start: 20220325, end: 20220328
  3. LORAZEPAM [Concomitant]
     Active Substance: LORAZEPAM
     Indication: Anxiety
     Dosage: 1 MG, TID
     Route: 048
     Dates: start: 20220314, end: 20220404
  4. LITHIUM CARBONATE SUSTAINED-RELEASE TABLETS [Concomitant]
     Indication: Emotional disorder
     Dosage: 0.3 G, BID
     Route: 048
     Dates: start: 20220314
  5. LITHIUM CARBONATE SUSTAINED-RELEASE TABLETS [Concomitant]
     Dosage: 0.9 G, QD, 0.3 PER ORAL EVERY DAY AND 0.6 G PER ORAL EVERY NIGHT
     Route: 048
     Dates: start: 20220319, end: 20220404

REACTIONS (4)
  - Rash papular [Recovering/Resolving]
  - Pyrexia [Recovered/Resolved]
  - Miliaria [Recovering/Resolving]
  - Drug hypersensitivity [Unknown]

NARRATIVE: CASE EVENT DATE: 20220328
